FAERS Safety Report 23118830 (Version 1)
Quarter: 2023Q4

REPORT INFORMATION
  Report Type: Report from Study
  Country: GB (occurrence: GB)
  Receive Date: 20231028
  Receipt Date: 20231028
  Transmission Date: 20240110
  Serious: Yes (Other)
  Sender: FDA-Public Use
  Company Number: GB-TEVA-2023-GB-2939659

PATIENT
  Age: 66 Year
  Sex: Male

DRUGS (1)
  1. COPAXONE [Suspect]
     Active Substance: GLATIRAMER ACETATE
     Indication: Multiple sclerosis
     Dosage: 40 MG/ML,
     Dates: start: 20210914

REACTIONS (5)
  - Feeling hot [Recovering/Resolving]
  - Erythema [Recovering/Resolving]
  - Tremor [Recovered/Resolved]
  - Immediate post-injection reaction [Recovering/Resolving]
  - Multiple sclerosis relapse [Unknown]

NARRATIVE: CASE EVENT DATE: 20230101
